FAERS Safety Report 8958495 (Version 1)
Quarter: 2012Q4

REPORT INFORMATION
  Report Type: Spontaneous
  Country: US (occurrence: None)
  Receive Date: 20121205
  Receipt Date: 20121205
  Transmission Date: 20130627
  Serious: Yes (Life-Threatening)
  Sender: FDA-Public Use
  Company Number: None

PATIENT
  Age: 58 Year
  Sex: Male
  Weight: 83.92 kg

DRUGS (2)
  1. NIASPAN [Suspect]
     Indication: BLOOD CHOLESTEROL
     Dosage: 500 MG ER 1x Every Day
     Dates: start: 201211, end: 20121121
  2. NIASPAN [Suspect]
     Indication: CHOLESTEROL
     Dosage: 500 MG ER 1x Every Day
     Dates: start: 201211, end: 20121121

REACTIONS (4)
  - Dizziness [None]
  - Disorientation [None]
  - Heart rate increased [None]
  - Apparent death [None]
